FAERS Safety Report 14346756 (Version 2)
Quarter: 2018Q1

REPORT INFORMATION
  Report Type: Spontaneous
  Country: US (occurrence: US)
  Receive Date: 20180103
  Receipt Date: 20180119
  Transmission Date: 20180509
  Serious: Yes (Death)
  Sender: FDA-Public Use
  Company Number: US-FRESENIUS MEDICAL CARE RENAL THERAPIES GROUP-FMC-1712-001636

PATIENT
  Age: 67 Year
  Sex: Female
  Weight: 78 kg

DRUGS (3)
  1. FUROSEMIDE. [Concomitant]
     Active Substance: FUROSEMIDE
     Dosage: 40 MG 1 PO DAILY.
     Route: 048
  2. ENTRESTO [Concomitant]
     Active Substance: SACUBITRIL\VALSARTAN
  3. DELFLEX [Suspect]
     Active Substance: CALCIUM CHLORIDE\DEXTROSE\MAGNESIUM CHLORIDE\SODIUM CHLORIDE\SODIUM LACTATE
     Indication: END STAGE RENAL DISEASE
     Dosage: TIDAL THERAPY: 1800ML FF, 1500ML TIDAL FILL X 5 EXCHANGES, 1600ML TIDAL DRAIN, TOTAL 6 EXCHANGES. 10
     Route: 033

REACTIONS (2)
  - Respiratory arrest [Fatal]
  - Sepsis [Fatal]

NARRATIVE: CASE EVENT DATE: 20171205
